FAERS Safety Report 4453035-7 (Version None)
Quarter: 2004Q3

REPORT INFORMATION
  Report Type: 
  Country: None (occurrence: None)
  Receive Date: 20040916
  Receipt Date: 20040916
  Transmission Date: 20050211
  Serious: Yes (Life-Threatening)
  Sender: FDA-Public Use
  Company Number: None

PATIENT
  Sex: Male
  Weight: 66.2252 kg

DRUGS (2)
  1. PROTAMINE SULFATE [Suspect]
     Dosage: INTRAVENOUS
     Route: 042
     Dates: start: 20040914, end: 20040914
  2. PROTAMINE SULFATE [Suspect]

REACTIONS (5)
  - CARDIAC FUNCTION DISTURBANCE POSTOPERATIVE [None]
  - DILATATION VENTRICULAR [None]
  - HAEMODYNAMIC INSTABILITY [None]
  - PROCEDURAL COMPLICATION [None]
  - VENTRICULAR DYSFUNCTION [None]
